FAERS Safety Report 25501617 (Version 2)
Quarter: 2025Q3

REPORT INFORMATION
  Report Type: Spontaneous
  Country: US (occurrence: US)
  Receive Date: 20250701
  Receipt Date: 20250904
  Transmission Date: 20251021
  Serious: Yes (Other)
  Sender: BRISTOL-MYERS SQUIBB COMPANY
  Company Number: US-BRISTOL-MYERS SQUIBB COMPANY-2025-092821

PATIENT
  Age: 71 Year
  Sex: Female

DRUGS (1)
  1. POMALYST [Suspect]
     Active Substance: POMALIDOMIDE
     Indication: Plasma cell myeloma
     Dosage: QD FOR 3 WEEKS ON, 1 WEEK (DAILY FOR 21 DAYS THEN 7 DAYS OFF)
     Route: 048

REACTIONS (3)
  - Herpes zoster [Unknown]
  - Atypical pneumonia [Unknown]
  - Bacterial vulvovaginitis [Unknown]

NARRATIVE: CASE EVENT DATE: 20250101
